FAERS Safety Report 10125593 (Version 1)
Quarter: 2014Q2

REPORT INFORMATION
  Report Type: Report from Study
  Country: US (occurrence: US)
  Receive Date: 20140425
  Receipt Date: 20140425
  Transmission Date: 20141212
  Serious: Yes (Other)
  Sender: FDA-Public Use
  Company Number: US-ABBVIE-14P-163-1228536-00

PATIENT
  Age: 48 Year
  Sex: Female

DRUGS (5)
  1. LUPRON DEPOT [Suspect]
     Indication: ENDOMETRIOSIS
     Dates: start: 1993, end: 1993
  2. LUPRON DEPOT [Suspect]
     Dates: start: 201309
  3. LUPRON DEPOT [Suspect]
     Dates: start: 20140225
  4. MOTRIN [Suspect]
     Indication: ENDOMETRIOSIS
     Route: 048
     Dates: start: 201309
  5. TYLENOL [Suspect]
     Indication: ENDOMETRIOSIS
     Route: 048
     Dates: start: 201309

REACTIONS (16)
  - Breast mass [Unknown]
  - Precancerous cells present [Unknown]
  - Abdominal pain lower [Not Recovered/Not Resolved]
  - Endometriosis [Unknown]
  - Back pain [Not Recovered/Not Resolved]
  - Arthralgia [Recovered/Resolved]
  - Endometriosis [Recovered/Resolved]
  - Endometriosis [Recovered/Resolved]
  - Drug ineffective [Unknown]
  - Drug ineffective [Unknown]
  - Hysterectomy [Unknown]
  - Menopausal symptoms [Not Recovered/Not Resolved]
  - Mood swings [Not Recovered/Not Resolved]
  - Arthralgia [Not Recovered/Not Resolved]
  - Weight increased [Not Recovered/Not Resolved]
  - Alopecia [Not Recovered/Not Resolved]
